FAERS Safety Report 5218943-8 (Version None)
Quarter: 2007Q1

REPORT INFORMATION
  Report Type: 
  Country: None (occurrence: None)
  Receive Date: 20070125
  Receipt Date: 20070119
  Transmission Date: 20070707
  Serious: Yes (Other)
  Sender: FDA-Public Use
  Company Number: 2004UW22437

PATIENT
  Age: 72 Year
  Sex: Female
  Weight: 81.6 kg

DRUGS (17)
  1. ARIMIDEX [Suspect]
     Indication: BREAST CANCER
     Dosage: OFF ARIMIDEX FOR TWO MONTHS IN 2006
     Route: 048
     Dates: start: 20060101
  2. ARIMIDEX [Suspect]
     Dosage: OFF ARIMIDEX FOR TWO MONTHS IN 2006
     Route: 048
     Dates: start: 20040701, end: 20060101
  3. NAPROSYN [Concomitant]
  4. SYNTHROID [Concomitant]
  5. LASIX [Concomitant]
  6. NEBULIZER [Concomitant]
  7. VITAMIN CAP [Concomitant]
  8. WHEY PROTEIN [Concomitant]
  9. MUCINEX [Concomitant]
  10. IPRATROPRIUM BROMIDE/ALBUTEROL SULFATE [Concomitant]
  11. CALCIUM MAGNESIUM ZINC [Concomitant]
  12. VITAMIN B COMPLEX CAP [Concomitant]
  13. GINKGO [Concomitant]
  14. PSYLLIUM [Concomitant]
  15. VITAMIN A [Concomitant]
  16. ASCORBIC ACID [Concomitant]
  17. NIACIN [Concomitant]

REACTIONS (7)
  - ARTHRALGIA [None]
  - ARTHRITIS [None]
  - FATIGUE [None]
  - HYPOTRICHOSIS [None]
  - MYALGIA [None]
  - NEUROPATHY [None]
  - WEIGHT DECREASED [None]
